FAERS Safety Report 21548166 (Version 2)
Quarter: 2022Q4

REPORT INFORMATION
  Report Type: Report from Study
  Country: US (occurrence: US)
  Receive Date: 20221103
  Receipt Date: 20221109
  Transmission Date: 20230113
  Serious: Yes (Death, Hospitalization)
  Sender: FDA-Public Use
  Company Number: US-002147023-NVSC2022US247301

PATIENT
  Sex: Female

DRUGS (1)
  1. ENTRESTO [Suspect]
     Active Substance: SACUBITRIL\VALSARTAN
     Indication: Product used for unknown indication
     Dosage: 1 DOSAGE FORM (24/26 MG), BID
     Route: 048

REACTIONS (4)
  - Neoplasm malignant [Fatal]
  - Metabolic acidosis [Fatal]
  - Incarcerated hernia [Fatal]
  - Pneumonia [Fatal]

NARRATIVE: CASE EVENT DATE: 20210101
